FAERS Safety Report 25847223 (Version 1)
Quarter: 2025Q3

REPORT INFORMATION
  Report Type: Report from Study
  Country: CA (occurrence: CA)
  Receive Date: 20250925
  Receipt Date: 20250925
  Transmission Date: 20251020
  Serious: Yes (Hospitalization, Other)
  Sender: OTSUKA
  Company Number: CA-OTSUKA-2023_008898

PATIENT
  Sex: Female

DRUGS (9)
  1. ARIPIPRAZOLE [Suspect]
     Active Substance: ARIPIPRAZOLE
     Indication: Schizophrenia
     Route: 030
     Dates: start: 20230306
  2. ARIPIPRAZOLE [Suspect]
     Active Substance: ARIPIPRAZOLE
     Route: 030
  3. ARIPIPRAZOLE [Suspect]
     Active Substance: ARIPIPRAZOLE
     Route: 030
     Dates: start: 20230424
  4. ARIPIPRAZOLE [Suspect]
     Active Substance: ARIPIPRAZOLE
     Route: 030
  5. ARIPIPRAZOLE [Suspect]
     Active Substance: ARIPIPRAZOLE
     Route: 030
     Dates: start: 20240316
  6. NAPROXEN [Concomitant]
     Active Substance: NAPROXEN
     Indication: Pain
     Dosage: 500 MG, BID (PRN)
     Route: 065
  7. NAPROXEN [Concomitant]
     Active Substance: NAPROXEN
     Route: 065
  8. NICOTINE [Concomitant]
     Active Substance: NICOTINE
     Indication: Smoking cessation therapy
     Route: 065
  9. CLONAZEPAM [Concomitant]
     Active Substance: CLONAZEPAM
     Indication: Product used for unknown indication
     Dosage: 1 MG, BID
     Route: 065
     Dates: start: 20241202

REACTIONS (33)
  - Perinatal depression [Recovering/Resolving]
  - Mania [Recovering/Resolving]
  - Psychotic disorder [Recovered/Resolved]
  - Frustration tolerance decreased [Unknown]
  - Urine odour abnormal [Unknown]
  - Crying [Unknown]
  - Emotional disorder [Unknown]
  - Illness [Recovering/Resolving]
  - Respiratory tract congestion [Recovered/Resolved]
  - Limb discomfort [Recovered/Resolved]
  - Influenza like illness [Recovering/Resolving]
  - Mood swings [Unknown]
  - Musculoskeletal discomfort [Recovered/Resolved]
  - Irritability [Recovered/Resolved]
  - Irritability [Recovered/Resolved]
  - Irritability [Unknown]
  - Disturbance in attention [Recovered/Resolved]
  - Memory impairment [Recovered/Resolved]
  - Apathy [Recovered/Resolved]
  - Depression [Recovered/Resolved]
  - Depression [Unknown]
  - Depressed mood [Recovered/Resolved]
  - Cough [Recovered/Resolved]
  - Anxiety [Recovered/Resolved]
  - Anxiety [Unknown]
  - Vomiting [Recovering/Resolving]
  - Fatigue [Recovering/Resolving]
  - Maternal exposure during pregnancy [Unknown]
  - Inappropriate schedule of product administration [Unknown]
  - Inappropriate schedule of product administration [Unknown]
  - Therapeutic product effect incomplete [Unknown]
  - Product availability issue [Recovered/Resolved]
  - Alcohol use [Recovering/Resolving]
